FAERS Safety Report 15515939 (Version 2)
Quarter: 2019Q1

REPORT INFORMATION
  Report Type: Spontaneous
  Country: TW (occurrence: TW)
  Receive Date: 20181017
  Receipt Date: 20190204
  Transmission Date: 20190417
  Serious: Yes (Life-Threatening, Hospitalization, Other)
  Sender: FDA-Public Use
  Company Number: TW-ACCORD-073335

PATIENT
  Age: 60 Year
  Sex: Female

DRUGS (2)
  1. CLOZAPINE. [Suspect]
     Active Substance: CLOZAPINE
     Indication: SCHIZOPHRENIA
     Dosage: GRADUAL TITRATION TO 125 MG/D, INCREASED TO 150 MG/D ON DAY 14
  2. AMISULPRIDE [Concomitant]
     Active Substance: AMISULPRIDE
     Indication: SCHIZOPHRENIA
     Dosage: 200 MG/D,  GRADUAL TITRATION TO 800 MG/D

REACTIONS (4)
  - Septic shock [Recovering/Resolving]
  - Toxicity to various agents [Unknown]
  - Gastrointestinal hypomotility [Unknown]
  - Cytomegalovirus colitis [Recovered/Resolved]
